FAERS Safety Report 5473027-9 (Version None)
Quarter: 2007Q4

REPORT INFORMATION
  Report Type: 
  Country: None (occurrence: None)
  Receive Date: 20071001
  Receipt Date: 20070305
  Transmission Date: 20080405
  Serious: No
  Sender: FDA-Public Use
  Company Number: US-ASTRAZENECA-2007UW04185

PATIENT
  Age: 57 Year
  Sex: Female
  Weight: 80.3 kg

DRUGS (2)
  1. ARIMIDEX [Suspect]
     Route: 048
     Dates: start: 20061001
  2. ATIVAN [Concomitant]

REACTIONS (7)
  - BONE PAIN [None]
  - DRY SKIN [None]
  - DYSPHONIA [None]
  - ERYTHEMA [None]
  - PHARYNGOLARYNGEAL PAIN [None]
  - RHINORRHOEA [None]
  - SKIN WRINKLING [None]
